FAERS Safety Report 9559841 (Version 1)
Quarter: 2013Q3

REPORT INFORMATION
  Report Type: Spontaneous
  Country: US (occurrence: None)
  Receive Date: 20130906
  Receipt Date: 20130906
  Transmission Date: 20140515
  Serious: Yes (Hospitalization)
  Sender: FDA-Public Use
  Company Number: 163-POMAL-13063795

PATIENT
  Age: 83 Year
  Sex: Male

DRUGS (7)
  1. POMALYST (POMALIDOMIDE) (4 MILLIGRAM, CAPSULES) [Suspect]
     Indication: PLASMA CELL MYELOMA
     Route: 048
     Dates: start: 201304
  2. LASIX (FUROSEMIDE) [Concomitant]
  3. ATIVAN (LORAZEPAM) [Concomitant]
  4. MVI (MVI) [Concomitant]
  5. ZOLPIDEM (ZOLPIDEM) [Concomitant]
  6. WARFARIN (WARFARIN) [Concomitant]
  7. PREDNISONE (PREDNISONE) [Concomitant]

REACTIONS (1)
  - Cardiac failure congestive [None]
